FAERS Safety Report 9270756 (Version 1)
Quarter: 2013Q2

REPORT INFORMATION
  Report Type: Spontaneous
  Country: GB (occurrence: GB)
  Receive Date: 20130504
  Receipt Date: 20130504
  Transmission Date: 20140414
  Serious: Yes (Hospitalization)
  Sender: FDA-Public Use
  Company Number: GB-MYLANLABS-2013S1009030

PATIENT
  Age: 2 Hour
  Sex: Male

DRUGS (8)
  1. OLANZAPINE [Suspect]
     Route: 064
  2. OLANZAPINE [Suspect]
     Route: 064
  3. OLANZAPINE [Suspect]
     Route: 064
  4. SODIUM VALPROATE [Concomitant]
     Route: 064
  5. FOLIC ACID [Concomitant]
     Route: 064
  6. PROMETHAZINE [Concomitant]
     Route: 064
  7. DIAZEPAM [Concomitant]
     Route: 064
  8. LITHIUM [Concomitant]
     Route: 064

REACTIONS (5)
  - Hypoglycaemia neonatal [Recovered/Resolved]
  - Hyperinsulinism [Recovered/Resolved]
  - Foetal growth restriction [Recovered/Resolved]
  - Metabolic acidosis [Recovered/Resolved]
  - Foetal exposure during pregnancy [Recovered/Resolved]
